FAERS Safety Report 4276437-0 (Version None)
Quarter: 2004Q1

REPORT INFORMATION
  Report Type: 
  Country: None (occurrence: None)
  Receive Date: 20040116
  Receipt Date: 20040108
  Transmission Date: 20041129
  Serious: Yes (Other)
  Sender: FDA-Public Use
  Company Number: 200410129BCC

PATIENT
  Age: 72 Year
  Sex: Female
  Weight: 73.4827 kg

DRUGS (7)
  1. ASPIRIN [Suspect]
     Indication: ARTHRALGIA
     Dosage: 1300 MG, BID, ORAL
     Route: 048
     Dates: start: 20031101
  2. ALBUTEROL SULFATE [Concomitant]
  3. IPRATROPIUM BROMIDE [Concomitant]
  4. ALLEGRA [Concomitant]
  5. XANAX [Concomitant]
  6. LIPITOR [Concomitant]
  7. ZANTAC [Concomitant]

REACTIONS (3)
  - ABDOMINAL PAIN UPPER [None]
  - HAEMORRHAGE [None]
  - TREATMENT NONCOMPLIANCE [None]
